FAERS Safety Report 5481283-6 (Version None)
Quarter: 2007Q4

REPORT INFORMATION
  Report Type: 
  Country: None (occurrence: None)
  Receive Date: 20071010
  Receipt Date: 20071008
  Transmission Date: 20080405
  Serious: Yes (Death, Hospitalization, Other)
  Sender: FDA-Public Use
  Company Number: PHEH2006US01839

PATIENT

DRUGS (11)
  1. ZOMETA [Suspect]
     Indication: METASTASES TO BONE
     Dosage: 4MG QMOS
     Route: 042
     Dates: start: 20030401, end: 20050808
  2. ZOMETA [Suspect]
     Dates: start: 20051019
  3. VELCADE [Concomitant]
     Indication: MULTIPLE MYELOMA
     Dates: start: 20051019
  4. VINCRISTINE + ADRIAMYCIN + DEXAMETHASONE [Concomitant]
     Indication: MULTIPLE MYELOMA
  5. DARVOCET [Concomitant]
  6. NORVASC [Concomitant]
  7. DECADRON #1 [Concomitant]
     Indication: MULTIPLE MYELOMA
  8. THALIDOMIDE [Concomitant]
     Indication: MULTIPLE MYELOMA
  9. FENTANYL [Concomitant]
     Indication: BONE PAIN
     Dosage: 75 MCG Q3DAYS
  10. BEXTRA [Concomitant]
  11. MORPHINE [Concomitant]
     Indication: PAIN

REACTIONS (25)
  - BONE DISORDER [None]
  - DEATH [None]
  - DENTAL CARIES [None]
  - DENTAL TREATMENT [None]
  - IMPAIRED HEALING [None]
  - JAW OPERATION [None]
  - LEUKOPENIA [None]
  - MALIGNANT MELANOMA [None]
  - MASS [None]
  - MOUTH ULCERATION [None]
  - MULTIPLE MYELOMA [None]
  - OSTEONECROSIS [None]
  - PAIN [None]
  - PERICORONITIS [None]
  - PERIODONTAL DISEASE [None]
  - PNEUMONIA [None]
  - PYREXIA [None]
  - RADIOTHERAPY [None]
  - STEM CELL TRANSPLANT [None]
  - SURGERY [None]
  - TOOTH DISORDER [None]
  - TOOTH EXTRACTION [None]
  - TUMOUR LYSIS SYNDROME [None]
  - WOUND DEBRIDEMENT [None]
  - WOUND DRAINAGE [None]
